FAERS Safety Report 13077449 (Version 1)
Quarter: 2016Q4

REPORT INFORMATION
  Report Type: Spontaneous
  Country: CZ (occurrence: CZ)
  Receive Date: 20161231
  Receipt Date: 20161231
  Transmission Date: 20170207
  Serious: Yes (Hospitalization, Other)
  Sender: FDA-Public Use
  Company Number: CZ-BAXTER-2016BAX064739

PATIENT
  Age: 53 Year
  Sex: Female
  Weight: 83 kg

DRUGS (10)
  1. INDOMETACIN 50 BERLIN-CHEMIE [Concomitant]
     Indication: PRODUCT USED FOR UNKNOWN INDICATION
     Dosage: MAXIMUM 3 PER DAY
     Route: 065
  2. DORETA PROLONG 75 MG/650 MG [Concomitant]
     Indication: PRODUCT USED FOR UNKNOWN INDICATION
     Dosage: 1-1-1 DOSING ACCORDING TO THE PATIENT^S NEEDS
     Route: 065
  3. EUTHYROX [Concomitant]
     Active Substance: LEVOTHYROXINE SODIUM
     Indication: HYPOTHYROIDISM
     Dosage: DISCONTINUED BY ENDOCRINOLOGIST
     Route: 065
  4. HOLOXAN 2 G [Suspect]
     Active Substance: IFOSFAMIDE
     Dosage: DOSE RE-INTRODUCED
     Route: 042
  5. HOLOXAN 2 G [Suspect]
     Active Substance: IFOSFAMIDE
     Indication: SARCOMA
     Dosage: DOSE: 2G/M2 PER DAY
     Route: 042
     Dates: start: 20161215, end: 20161215
  6. LORADUR MITE [Concomitant]
     Indication: PRODUCT USED FOR UNKNOWN INDICATION
     Dosage: 0-0-1
     Route: 065
  7. CITALEC 10 [Concomitant]
     Indication: PRODUCT USED FOR UNKNOWN INDICATION
     Dosage: 1-0-0
     Route: 065
  8. TWYNSTA [Concomitant]
     Active Substance: AMLODIPINE BESYLATE\TELMISARTAN
     Indication: PRODUCT USED FOR UNKNOWN INDICATION
     Dosage: 1-0-0
     Route: 065
  9. EUTHYROX [Concomitant]
     Active Substance: LEVOTHYROXINE SODIUM
     Dosage: DOSE RE-INTRODUCED
     Route: 065
  10. ACECOR 200 [Concomitant]
     Indication: PRODUCT USED FOR UNKNOWN INDICATION
     Dosage: 1-0-0
     Route: 065

REACTIONS (5)
  - Neurotoxicity [Recovered/Resolved]
  - Confusional state [Recovered/Resolved]
  - Disorientation [Recovered/Resolved]
  - Tonic convulsion [Recovered/Resolved]
  - Neurologic somatic symptom disorder [Recovered/Resolved]

NARRATIVE: CASE EVENT DATE: 20161216
